FAERS Safety Report 4717739-0 (Version None)
Quarter: 2005Q3

REPORT INFORMATION
  Report Type: 
  Country: None (occurrence: None)
  Receive Date: 20050714
  Receipt Date: 20050406
  Transmission Date: 20060218
  Serious: Yes (Life-Threatening)
  Sender: FDA-Public Use
  Company Number: 05P-163-0296705-00

PATIENT
  Age: 49 Year
  Sex: Male
  Weight: 88.4514 kg

DRUGS (7)
  1. SEVOFLURANE [Suspect]
     Indication: MAINTENANCE OF ANAESTHESIA
     Dosage: INHALATION
     Route: 055
     Dates: start: 20050318, end: 20050318
  2. SODIUM NITROPRUSSIDE [Suspect]
     Dates: start: 20050318
  3. SUXAMETHONIUM CHLORIDE [Suspect]
     Indication: INTUBATION
     Dosage: 160 MG, INTRAVENOUS
     Route: 042
     Dates: start: 20050318, end: 20050318
  4. MILRINONE [Concomitant]
  5. GLYCERYL TRINITRATE [Concomitant]
  6. PROPOFOL [Concomitant]
  7. SODIUM NITROPRUSSIDE [Concomitant]

REACTIONS (1)
  - HYPERTHERMIA MALIGNANT [None]
